FAERS Safety Report 5906070-3 (Version None)
Quarter: 2008Q4

REPORT INFORMATION
  Report Type: 
  Country: None (occurrence: None)
  Receive Date: 20081002
  Receipt Date: 20080923
  Transmission Date: 20090506
  Serious: Yes (Other)
  Sender: FDA-Public Use
  Company Number: PHEH2008US08539

PATIENT
  Sex: Male

DRUGS (1)
  1. FOCALIN XR [Suspect]
     Dosage: 2 X 15 MG QAM
     Dates: start: 20070101

REACTIONS (2)
  - ANKLE FRACTURE [None]
  - WRIST FRACTURE [None]
